FAERS Safety Report 16060250 (Version 1)
Quarter: 2019Q1

REPORT INFORMATION
  Report Type: Other
  Country: CA (occurrence: CA)
  Receive Date: 20190312
  Receipt Date: 20190312
  Transmission Date: 20190418
  Serious: Yes (Life-Threatening, Hospitalization, Other)
  Sender: FDA-Public Use
  Company Number: CA-APOTEX-2019AP008976

PATIENT
  Age: 41 Year
  Sex: Female

DRUGS (10)
  1. GLUCOSE [Suspect]
     Active Substance: DEXTROSE
     Dosage: 12 DF, UNK
     Route: 042
  2. CLONAZEPAM. [Suspect]
     Active Substance: CLONAZEPAM
     Indication: PRODUCT USED FOR UNKNOWN INDICATION
     Dosage: 2 MG, UNK
     Route: 048
  3. ZOPICLONE [Suspect]
     Active Substance: ZOPICLONE
     Indication: SUICIDE ATTEMPT
     Dosage: 45 MG, UNK
     Route: 048
  4. ZOPICLONE [Suspect]
     Active Substance: ZOPICLONE
     Indication: PRODUCT USED FOR UNKNOWN INDICATION
  5. NOVORAPID [Suspect]
     Active Substance: INSULIN ASPART
     Indication: SUICIDE ATTEMPT
     Dosage: 300 UNITS, UNK
     Route: 058
  6. DEXTROSE. [Suspect]
     Active Substance: DEXTROSE
     Dosage: 50 %, UNK
     Route: 065
  7. NOVORAPID [Suspect]
     Active Substance: INSULIN ASPART
     Indication: PRODUCT USED FOR UNKNOWN INDICATION
  8. GLUCOSE [Suspect]
     Active Substance: DEXTROSE
     Indication: PRODUCT USED FOR UNKNOWN INDICATION
     Dosage: 2000 ML, UNK
     Route: 042
  9. GLUCOSE [Suspect]
     Active Substance: DEXTROSE
     Dosage: 50 ML, UNK
     Route: 042
  10. DEXTROSE. [Suspect]
     Active Substance: DEXTROSE
     Indication: HYPOGLYCAEMIA
     Dosage: 10 %, UNK
     Route: 041

REACTIONS (10)
  - Hyperhidrosis [Recovered/Resolved]
  - Somnolence [Unknown]
  - Ataxia [Recovered/Resolved]
  - Intentional overdose [Recovered/Resolved]
  - Hypoglycaemia [Recovered/Resolved]
  - Lethargy [Recovered/Resolved]
  - Suicide attempt [Unknown]
  - Blood potassium decreased [Unknown]
  - Oedema peripheral [Recovered/Resolved]
  - Blood pressure decreased [Unknown]
